FAERS Safety Report 19025402 (Version 1)
Quarter: 2021Q1

REPORT INFORMATION
  Report Type: Spontaneous
  Country: US (occurrence: US)
  Receive Date: 20210317
  Receipt Date: 20210317
  Transmission Date: 20210420
  Serious: Yes (Hospitalization)
  Sender: FDA-Public Use
  Company Number: None

PATIENT
  Sex: Male
  Weight: 36.8 kg

DRUGS (2)
  1. VINCRISTINE SULFATE. [Concomitant]
     Active Substance: VINCRISTINE SULFATE
  2. METHOTREXATE. [Suspect]
     Active Substance: METHOTREXATE

REACTIONS (10)
  - Oesophageal candidiasis [None]
  - Mucosal inflammation [None]
  - Oropharyngeal plaque [None]
  - Lip dry [None]
  - Hypophagia [None]
  - Lip erythema [None]
  - Pancytopenia [None]
  - Lip swelling [None]
  - Neutropenia [None]
  - Paronychia [None]

NARRATIVE: CASE EVENT DATE: 20210227
